FAERS Safety Report 7302714-2 (Version None)
Quarter: 2011Q1

REPORT INFORMATION
  Report Type: 
  Country: None (occurrence: None)
  Receive Date: 20110218
  Receipt Date: 20110211
  Transmission Date: 20110831
  Serious: Yes (Other)
  Sender: FDA-Public Use
  Company Number: US-US-EMD SERONO, INC.-231940K09USA

PATIENT
  Sex: Female

DRUGS (2)
  1. REBIF [Suspect]
     Route: 058
     Dates: start: 20101201
  2. REBIF [Suspect]
     Indication: MULTIPLE SCLEROSIS
     Route: 058
     Dates: start: 20090302, end: 20101201

REACTIONS (8)
  - PERONEAL NERVE PALSY [None]
  - PAIN IN EXTREMITY [None]
  - POST PROCEDURAL COMPLICATION [None]
  - FATIGUE [None]
  - MOOD ALTERED [None]
  - EXOSTOSIS [None]
  - HEADACHE [None]
  - INTERVERTEBRAL DISC PROTRUSION [None]
